FAERS Safety Report 7384192-0 (Version None)
Quarter: 2011Q1

REPORT INFORMATION
  Report Type: 
  Country: None (occurrence: None)
  Receive Date: 20110330
  Receipt Date: 20110323
  Transmission Date: 20110831
  Serious: Yes (Hospitalization)
  Sender: FDA-Public Use
  Company Number: B0709392A

PATIENT
  Age: 66 Year
  Sex: Female

DRUGS (11)
  1. ARIXTRA [Suspect]
     Dosage: 7.5MG PER DAY
     Route: 058
     Dates: start: 20110210, end: 20110214
  2. SIRDALUD [Suspect]
     Route: 048
     Dates: start: 20110214, end: 20110217
  3. BECOZYME C FORTE [Concomitant]
  4. MORPHINE [Concomitant]
  5. LAXOBERON [Concomitant]
  6. ANXIOLIT [Concomitant]
  7. TRAMAL [Concomitant]
  8. BENERVA [Concomitant]
  9. SINTROM [Suspect]
     Route: 048
     Dates: start: 20110211, end: 20110217
  10. FLUID [Concomitant]
  11. DAFALGAN [Concomitant]

REACTIONS (5)
  - HAEMATOMA [None]
  - MUSCLE HAEMORRHAGE [None]
  - HYPOTENSION [None]
  - BACK PAIN [None]
  - DRUG INTERACTION [None]
